FAERS Safety Report 8960985 (Version 1)
Quarter: 2012Q4

REPORT INFORMATION
  Report Type: 
  Country: CH (occurrence: US)
  Receive Date: 20121212
  Receipt Date: 20121212
  Transmission Date: 20130627
  Serious: Yes (Hospitalization)
  Sender: FDA-Public Use
  Company Number: US-009507513-1212CHE002712

PATIENT
  Age: 43 Year
  Sex: Male

DRUGS (3)
  1. JANUVIA [Suspect]
     Indication: TYPE 2 DIABETES MELLITUS
     Dosage: UNK
     Route: 048
     Dates: start: 20100401, end: 20100520
  2. NEXIUM [Suspect]
     Indication: DUODENAL ULCER
     Route: 048
  3. RIMACTAZID [Suspect]
     Indication: DISSEMINATED TUBERCULOSIS
     Dosage: UNK
     Route: 048
     Dates: start: 20100317, end: 20100518

REACTIONS (1)
  - Renal failure acute [Not Recovered/Not Resolved]
